FAERS Safety Report 12109390 (Version 1)
Quarter: 2016Q1

REPORT INFORMATION
  Report Type: Spontaneous
  Country: US (occurrence: US)
  Receive Date: 20160224
  Receipt Date: 20160224
  Transmission Date: 20160526
  Serious: No
  Sender: FDA-Public Use
  Company Number: US-BAUSCH-BL-2015-019600

PATIENT
  Age: 74 Year
  Sex: Female

DRUGS (4)
  1. MOMETASONE CREAM [Suspect]
     Active Substance: MOMETASONE
     Indication: SEBORRHOEA
     Route: 061
  2. NEOMYCIN AND POLYMYXIN B SULFATES AND HYDROCORTISONE [Suspect]
     Active Substance: HYDROCORTISONE\NEOMYCIN SULFATE\POLYMYXIN B SULFATE
     Indication: SEBORRHOEA
     Route: 001
     Dates: start: 20150724
  3. HYDROGEN PEROXIDE. [Suspect]
     Active Substance: HYDROGEN PEROXIDE
     Indication: SEBORRHOEA
     Route: 061
  4. SIMILASAN EAR DROPS [Suspect]
     Active Substance: HOMEOPATHICS
     Indication: SEBORRHOEA
     Route: 001

REACTIONS (2)
  - Off label use [Unknown]
  - Ear disorder [Not Recovered/Not Resolved]
